FAERS Safety Report 7340107-2 (Version None)
Quarter: 2011Q1

REPORT INFORMATION
  Report Type: 
  Country: None (occurrence: None)
  Receive Date: 20110309
  Receipt Date: 20110309
  Transmission Date: 20110831
  Serious: Yes (Hospitalization)
  Sender: FDA-Public Use
  Company Number: PHHO2009IL10102

PATIENT
  Sex: Male
  Weight: 17 kg

DRUGS (6)
  1. STEROIDS NOS [Concomitant]
  2. NSAID'S [Concomitant]
  3. METHOTREXATE [Concomitant]
     Dosage: UNK
     Dates: start: 20081118, end: 20090813
  4. ACZ885 [Suspect]
     Indication: ARTHRITIS
     Dosage: UNK
     Route: 058
     Dates: start: 20090810
  5. PREDNISONE [Concomitant]
     Dosage: UNK
     Dates: start: 20090730
  6. NAXYN [Concomitant]
     Dosage: UNK
     Dates: start: 20081001, end: 20090813

REACTIONS (1)
  - VARICELLA [None]
